FAERS Safety Report 17031741 (Version 1)
Quarter: 2019Q4

REPORT INFORMATION
  Report Type: Spontaneous
  Country: US (occurrence: US)
  Receive Date: 20191114
  Receipt Date: 20191114
  Transmission Date: 20200122
  Serious: No
  Sender: FDA-Public Use
  Company Number: US-ANIPHARMA-2019-US-016376

PATIENT
  Age: 64 Year
  Sex: Male
  Weight: 127.01 kg

DRUGS (4)
  1. METOPROLOL. [Concomitant]
     Active Substance: METOPROLOL
     Dosage: 50MG DAILY
     Route: 048
  2. FLECAINIDE ACETATE TABLETS 50 MG [Suspect]
     Active Substance: FLECAINIDE ACETATE
     Indication: ATRIAL FIBRILLATION
     Dosage: 1 TABLET ONCE  PER DAY, THEN 2 TWICE PER DAY, THEN 100MG TABLET TWICE PER DAY
     Route: 048
     Dates: start: 20190813, end: 20190820
  3. XARELTO [Concomitant]
     Active Substance: RIVAROXABAN
     Dosage: 20MG
  4. FISH OIL [Concomitant]
     Active Substance: FISH OIL
     Route: 048

REACTIONS (4)
  - Nausea [Recovered/Resolved]
  - Abdominal distension [Recovered/Resolved]
  - Abdominal discomfort [Recovered/Resolved]
  - Malaise [Recovered/Resolved]

NARRATIVE: CASE EVENT DATE: 20190813
